FAERS Safety Report 7245995 (Version 4)
Quarter: 2012Q4

REPORT INFORMATION
  Report Type: Report from Study
  Country: FR (occurrence: FR)
  Receive Date: 20100114
  Receipt Date: 20120910
  Transmission Date: 20130627
  Serious: Yes (Hospitalization)
  Sender: FDA-Public Use
  Company Number: FR-ROCHE-678512

PATIENT
  Age: 56 Year
  Sex: Female
  Weight: 43 kg

DRUGS (2)
  1. AVASTIN [Suspect]
     Indication: NON-SMALL CELL LUNG CANCER
     Route: 042
     Dates: start: 20091126, end: 20091217
  2. TARCEVA [Suspect]
     Indication: NON-SMALL CELL LUNG CANCER
     Route: 048
     Dates: start: 20091126, end: 20091217

REACTIONS (2)
  - Oesophageal ulcer [Recovered/Resolved]
  - Staphylococcal sepsis [Recovered/Resolved]
